FAERS Safety Report 17358630 (Version 9)
Quarter: 2021Q4

REPORT INFORMATION
  Report Type: Report from Study
  Country: NL (occurrence: NL)
  Receive Date: 20200201
  Receipt Date: 20211230
  Transmission Date: 20220303
  Serious: Yes (Hospitalization, Other)
  Sender: FDA-Public Use
  Company Number: NL-ABBVIE-19S-114-2729255-00

PATIENT
  Age: 47 Year
  Sex: Male

DRUGS (7)
  1. CARBIDOPA\LEVODOPA [Suspect]
     Active Substance: CARBIDOPA\LEVODOPA
     Indication: Parkinson^s disease
     Route: 050
     Dates: start: 20180626
  2. CARBIDOPA\LEVODOPA [Suspect]
     Active Substance: CARBIDOPA\LEVODOPA
     Dosage: MORNING DOSE 6 CONTINUOUS DOSE 1.9 EXTRA DOSE 1.5,
     Route: 050
  3. CARBIDOPA\LEVODOPA [Suspect]
     Active Substance: CARBIDOPA\LEVODOPA
     Dosage: MD 5.6ML, CD 1.7ML/H, ED 1.5ML, REMAINED IN 16 HOURS.
     Route: 050
  4. CARBIDOPA\LEVODOPA [Suspect]
     Active Substance: CARBIDOPA\LEVODOPA
     Dosage: MD: 3.0ML; CD:1.5ML/H ED:1.5ML
     Route: 050
  5. LEVODOPA [Concomitant]
     Active Substance: LEVODOPA
     Indication: Parkinson^s disease
  6. CARBIDOPA\LEVODOPA [Concomitant]
     Active Substance: CARBIDOPA\LEVODOPA
     Indication: Parkinson^s disease
  7. ENZYME INHIBITOR [Concomitant]
     Indication: Parkinson^s disease

REACTIONS (29)
  - Appendicitis [Recovered/Resolved]
  - Suicidal ideation [Not Recovered/Not Resolved]
  - Abdominal pain [Not Recovered/Not Resolved]
  - On and off phenomenon [Recovered/Resolved]
  - Memory impairment [Not Recovered/Not Resolved]
  - Tension [Not Recovered/Not Resolved]
  - Loss of personal independence in daily activities [Not Recovered/Not Resolved]
  - Mood swings [Not Recovered/Not Resolved]
  - Emotional disorder [Not Recovered/Not Resolved]
  - Haemoptysis [Not Recovered/Not Resolved]
  - Muscle rigidity [Not Recovered/Not Resolved]
  - Muscle spasms [Not Recovered/Not Resolved]
  - Parkinson^s disease [Not Recovered/Not Resolved]
  - Bradykinesia [Recovered/Resolved]
  - Freezing phenomenon [Not Recovered/Not Resolved]
  - Dyskinesia [Not Recovered/Not Resolved]
  - Depression [Recovering/Resolving]
  - Dysphagia [Not Recovered/Not Resolved]
  - Hypokinesia [Recovered/Resolved]
  - Dyskinesia [Recovered/Resolved]
  - Muscle rigidity [Not Recovered/Not Resolved]
  - Mobility decreased [Not Recovered/Not Resolved]
  - Balance disorder [Not Recovered/Not Resolved]
  - Gait disturbance [Not Recovered/Not Resolved]
  - Fall [Not Recovered/Not Resolved]
  - On and off phenomenon [Not Recovered/Not Resolved]
  - Dyspnoea [Not Recovered/Not Resolved]
  - Muscle rigidity [Recovered/Resolved]
  - Unevaluable event [Not Recovered/Not Resolved]

NARRATIVE: CASE EVENT DATE: 20190301
